FAERS Safety Report 5040632-3 (Version None)
Quarter: 2006Q2

REPORT INFORMATION
  Report Type: 
  Country: None (occurrence: None)
  Receive Date: 20060628
  Receipt Date: 20060519
  Transmission Date: 20061013
  Serious: Yes (Disabling)
  Sender: FDA-Public Use
  Company Number: 226594

PATIENT
  Age: 27 Year
  Sex: Female
  Weight: 60.0109 kg

DRUGS (1)
  1. AVASTIN [Suspect]
     Indication: COLORECTAL CANCER
     Dosage: 7.5 MG/KG SUBCUTANEOUS
     Route: 058
     Dates: start: 20051115, end: 20060215

REACTIONS (1)
  - SACROILIITIS [None]
